FAERS Safety Report 4993117-4 (Version None)
Quarter: 2006Q1

REPORT INFORMATION
  Report Type: 
  Country: None (occurrence: None)
  Receive Date: 20060313
  Receipt Date: 20051207
  Transmission Date: 20060701
  Serious: No
  Sender: FDA-Public Use
  Company Number: 2005-BP-21104BP

PATIENT
  Sex: Male

DRUGS (2)
  1. SPIRIVA [Suspect]
     Dosage: IH
     Route: 055
     Dates: end: 20051206
  2. ADVAIR (SERETIDE) [Suspect]
     Dosage: (THERAPY DATES: STARTED ONE WEEK AGO)

REACTIONS (1)
  - HALLUCINATION [None]
